FAERS Safety Report 8295654-6 (Version None)
Quarter: 2012Q2

REPORT INFORMATION
  Report Type: 
  Country: None (occurrence: None)
  Receive Date: 20120418
  Receipt Date: 20111213
  Transmission Date: 20120825
  Serious: Yes (Other)
  Sender: FDA-Public Use
  Company Number: JP-MERCK-1112USA00523

PATIENT
  Age: 8 Year
  Sex: Female

DRUGS (3)
  1. DEXAMETHASONE [Suspect]
     Route: 048
  2. DEXAMETHASONE [Suspect]
     Indication: BRAIN TERATOMA
     Dosage: #1CHEMOTHERAPY (ON DAY 24) AND #2CT (ON DAY 52)
     Route: 048
  3. DEXAMETHASONE [Suspect]
     Route: 048

REACTIONS (2)
  - HYPERCALCAEMIA [None]
  - ADRENAL INSUFFICIENCY [None]
